FAERS Safety Report 9169713 (Version 1)
Quarter: 2013Q1

REPORT INFORMATION
  Report Type: Spontaneous
  Country: CN (occurrence: CN)
  Receive Date: 20130318
  Receipt Date: 20130318
  Transmission Date: 20140127
  Serious: Yes (Death, Hospitalization)
  Sender: FDA-Public Use
  Company Number: PHHY2013CN025367

PATIENT
  Age: 34 Year
  Sex: Male

DRUGS (5)
  1. FLUCONAZOLE [Suspect]
     Indication: ANTIFUNGAL TREATMENT
     Dosage: 400 MG, DAILY
     Route: 042
  2. PREDNISOLONE [Suspect]
     Indication: NEPHROTIC SYNDROME
     Dosage: 60 MG, DAILY
  3. TRIAMCINOLONE [Suspect]
     Indication: NEPHROTIC SYNDROME
     Dosage: 48 MG, DAILY
  4. FUROSEMIDE [Concomitant]
     Indication: OEDEMA PERIPHERAL
     Dosage: 20 MG, DAILY
  5. GAMMA GLOBULIN [Concomitant]
     Indication: IMMUNE SYSTEM DISORDER

REACTIONS (16)
  - Death [Fatal]
  - Immune reconstitution inflammatory syndrome [Unknown]
  - Acute respiratory failure [Unknown]
  - Hypoxia [Unknown]
  - Loss of consciousness [Unknown]
  - Depressed level of consciousness [Unknown]
  - Cardiac failure [Unknown]
  - Hypotension [Unknown]
  - Delirium [Unknown]
  - Disseminated cryptococcosis [Unknown]
  - Skin necrosis [Unknown]
  - Skin ulcer [Unknown]
  - Pain in extremity [Unknown]
  - Skin induration [Unknown]
  - Erythema [Unknown]
  - Pyrexia [Unknown]
